FAERS Safety Report 10460238 (Version 1)
Quarter: 2014Q3

REPORT INFORMATION
  Report Type: Report from Study
  Country: BR (occurrence: BR)
  Receive Date: 20140917
  Receipt Date: 20140917
  Transmission Date: 20150326
  Serious: Yes (Other)
  Sender: FDA-Public Use
  Company Number: PHHY2014BR120600

PATIENT
  Sex: Male
  Weight: 100 kg

DRUGS (3)
  1. TEGRETOL CR [Suspect]
     Active Substance: CARBAMAZEPINE
     Indication: CONVULSION
     Dosage: 2 DF, DAILY
     Route: 048
     Dates: start: 2008, end: 2009
  2. TEGRETOL CR [Suspect]
     Active Substance: CARBAMAZEPINE
     Indication: EPILEPSY
  3. EDHANOL [Concomitant]
     Indication: CONVULSION
     Dosage: 100 MG, UNK

REACTIONS (11)
  - Road traffic accident [Unknown]
  - Epilepsy [Not Recovered/Not Resolved]
  - Limb injury [Not Recovered/Not Resolved]
  - Blindness [Not Recovered/Not Resolved]
  - Deafness [Not Recovered/Not Resolved]
  - Vertigo [Not Recovered/Not Resolved]
  - Loss of consciousness [Not Recovered/Not Resolved]
  - Convulsion [Not Recovered/Not Resolved]
  - Dyskinesia [Not Recovered/Not Resolved]
  - Speech disorder [Unknown]
  - Dizziness [Not Recovered/Not Resolved]

NARRATIVE: CASE EVENT DATE: 2013
